FAERS Safety Report 9359082 (Version 1)
Quarter: 2013Q2

REPORT INFORMATION
  Report Type: Spontaneous
  Country: US (occurrence: US)
  Receive Date: 20130620
  Receipt Date: 20130620
  Transmission Date: 20140414
  Serious: No
  Sender: FDA-Public Use
  Company Number: US-US-EMD SERONO, INC.-230287K08USA

PATIENT
  Age: 66 Year
  Sex: Female

DRUGS (1)
  1. REBIF [Suspect]
     Indication: MULTIPLE SCLEROSIS
     Route: 058
     Dates: start: 20070801

REACTIONS (5)
  - Bursitis [Unknown]
  - Hyperhidrosis [Unknown]
  - Sinus congestion [Unknown]
  - Urinary incontinence [Unknown]
  - Injection site reaction [Unknown]
